FAERS Safety Report 7024576-3 (Version None)
Quarter: 2010Q4

REPORT INFORMATION
  Report Type: 
  Country: None (occurrence: None)
  Receive Date: 20101001
  Receipt Date: 20100920
  Transmission Date: 20110411
  Serious: Yes (Hospitalization, Other)
  Sender: FDA-Public Use
  Company Number: US-SANOFI-AVENTIS-2010SA050592

PATIENT
  Age: 63 Year
  Sex: Male

DRUGS (9)
  1. OXALIPLATIN [Suspect]
     Indication: RECTAL CANCER METASTATIC
     Route: 041
     Dates: start: 20090430, end: 20090430
  2. OXALIPLATIN [Suspect]
     Route: 041
     Dates: start: 20090930, end: 20090930
  3. BEVACIZUMAB [Suspect]
     Indication: RECTAL CANCER METASTATIC
     Route: 041
     Dates: start: 20090430, end: 20090430
  4. BEVACIZUMAB [Suspect]
     Route: 041
     Dates: start: 20100721, end: 20100721
  5. BEVACIZUMAB [Suspect]
     Route: 041
     Dates: start: 20100818, end: 20100818
  6. LEUCOVORIN CALCIUM [Suspect]
     Indication: RECTAL CANCER METASTATIC
     Route: 041
     Dates: start: 20090430, end: 20090430
  7. LEUCOVORIN CALCIUM [Suspect]
     Route: 041
     Dates: start: 20100721, end: 20100721
  8. FLUOROURACIL [Suspect]
     Indication: RECTAL CANCER METASTATIC
     Route: 041
     Dates: start: 20090430, end: 20090430
  9. FLUOROURACIL [Suspect]
     Route: 041
     Dates: start: 20100721, end: 20100721

REACTIONS (6)
  - ABDOMINAL PAIN UPPER [None]
  - BACK PAIN [None]
  - GAIT DISTURBANCE [None]
  - MUSCLE SPASMS [None]
  - NEUROPATHY PERIPHERAL [None]
  - PUBIS FRACTURE [None]
